FAERS Safety Report 13695657 (Version 1)
Quarter: 2017Q2

REPORT INFORMATION
  Report Type: Spontaneous
  Country: US (occurrence: US)
  Receive Date: 20170627
  Receipt Date: 20170627
  Transmission Date: 20170830
  Serious: Yes (Hospitalization)
  Sender: FDA-Public Use
  Company Number: US-VIFOR (INTERNATIONAL) INC.-VIT-2016-07877

PATIENT
  Age: 68 Year
  Sex: Female

DRUGS (7)
  1. ELIQUIS [Concomitant]
     Active Substance: APIXABAN
  2. ASCORBIC ACID. [Concomitant]
     Active Substance: ASCORBIC ACID
  3. COUMADIN [Concomitant]
     Active Substance: WARFARIN SODIUM
  4. COLECALCIFEROL [Concomitant]
     Active Substance: CHOLECALCIFEROL
  5. VELTASSA [Suspect]
     Active Substance: PATIROMER
     Indication: HYPERKALAEMIA
     Route: 048
     Dates: start: 20160707
  6. FOLIC ACID. [Concomitant]
     Active Substance: FOLIC ACID
  7. METOPROLOL. [Concomitant]
     Active Substance: METOPROLOL

REACTIONS (8)
  - Fall [Not Recovered/Not Resolved]
  - Posture abnormal [Unknown]
  - Balance disorder [Unknown]
  - Drug level changed [Unknown]
  - Blood potassium increased [Unknown]
  - Visual impairment [Unknown]
  - Gait disturbance [Unknown]
  - Confusional state [Unknown]

NARRATIVE: CASE EVENT DATE: 2016
